FAERS Safety Report 8172902-4 (Version None)
Quarter: 2012Q1

REPORT INFORMATION
  Report Type: 
  Country: None (occurrence: None)
  Receive Date: 20120229
  Receipt Date: 20120223
  Transmission Date: 20120608
  Serious: Yes (Other)
  Sender: FDA-Public Use
  Company Number: BR-SANOFI-AVENTIS-2012SA012340

PATIENT
  Age: 61 Year
  Sex: Female
  Weight: 74 kg

DRUGS (4)
  1. LANTUS [Suspect]
     Dosage: DOSE: 50 IU AT LUNCH AND 25 IU AT DINNER
     Route: 058
     Dates: start: 20070101
  2. ALDOMET [Concomitant]
     Indication: BLOOD PRESSURE
     Route: 048
  3. AUTOPEN 24 [Concomitant]
     Indication: DEVICE THERAPY
     Dates: start: 20070101
  4. LOSARTAN POTASSIUM [Concomitant]
     Route: 048

REACTIONS (2)
  - BLINDNESS [None]
  - DRUG ADMINISTRATION ERROR [None]
